FAERS Safety Report 16710575 (Version 4)
Quarter: 2019Q3

REPORT INFORMATION
  Report Type: Spontaneous
  Country: US (occurrence: US)
  Receive Date: 20190816
  Receipt Date: 20190930
  Transmission Date: 20191004
  Serious: Yes (Other)
  Sender: FDA-Public Use
  Company Number: US-PFIZER INC-2019349622

PATIENT
  Age: 76 Year
  Sex: Female

DRUGS (1)
  1. IBRANCE [Suspect]
     Active Substance: PALBOCICLIB
     Indication: BREAST CANCER METASTATIC
     Dosage: 75 MG, UNK

REACTIONS (11)
  - Chronic lymphocytic leukaemia [Unknown]
  - Stomatitis [Unknown]
  - Back pain [Unknown]
  - Hot flush [Unknown]
  - Intervertebral disc protrusion [Unknown]
  - Second primary malignancy [Unknown]
  - Cough [Unknown]
  - Dyspnoea [Unknown]
  - Fatigue [Unknown]
  - White blood cell count decreased [Unknown]
  - Pruritus [Unknown]
